FAERS Safety Report 6762934-2 (Version None)
Quarter: 2010Q2

REPORT INFORMATION
  Report Type: 
  Country: None (occurrence: None)
  Receive Date: 20100609
  Receipt Date: 20100604
  Transmission Date: 20101027
  Serious: Yes (Disabling, Other)
  Sender: FDA-Public Use
  Company Number: US-PFIZER INC-2007033311

PATIENT
  Sex: Female
  Weight: 68.027 kg

DRUGS (10)
  1. CELEBREX [Suspect]
     Indication: OSTEOARTHRITIS
     Route: 048
  2. TOPROL-XL [Concomitant]
     Indication: HYPERTENSION
  3. ENALAPRIL [Concomitant]
     Indication: HYPERTENSION
  4. NORVASC [Concomitant]
     Indication: HYPERTENSION
  5. HYDROCHLOROTHIAZIDE [Concomitant]
     Indication: HYPERTENSION
  6. ZOCOR [Concomitant]
  7. WARFARIN [Concomitant]
  8. VITAMINS [Concomitant]
     Dosage: UNK
  9. FOLIC ACID [Concomitant]
     Dosage: UNK
  10. IRON [Concomitant]
     Dosage: UNK

REACTIONS (6)
  - BACK DISORDER [None]
  - DISABILITY [None]
  - HAEMATOCHEZIA [None]
  - HAEMORRHAGE [None]
  - SYNOVIAL CYST [None]
  - THROMBOSIS [None]
